FAERS Safety Report 21127440 (Version 2)
Quarter: 2022Q3

REPORT INFORMATION
  Report Type: Spontaneous
  Country: US (occurrence: US)
  Receive Date: 20220725
  Receipt Date: 20220908
  Transmission Date: 20221027
  Serious: No
  Sender: FDA-Public Use
  Company Number: US-BRISTOL-MYERS SQUIBB COMPANY-USA-20220102250

PATIENT
  Age: 80 Year
  Sex: Male

DRUGS (2)
  1. POMALYST [Suspect]
     Active Substance: POMALIDOMIDE
     Indication: Plasma cell myeloma
     Route: 048
     Dates: start: 20200427
  2. POMALYST [Suspect]
     Active Substance: POMALIDOMIDE
     Indication: End stage renal disease
     Dosage: FREQ - TAKE 1 CAPSULE BY MOUTH 3 TIMES WEEKLY AS DIRECTED
     Route: 048

REACTIONS (2)
  - Product dose omission issue [Unknown]
  - Off label use [Unknown]
